FAERS Safety Report 10555865 (Version 1)
Quarter: 2014Q4

REPORT INFORMATION
  Report Type: Spontaneous
  Country: JP (occurrence: JP)
  Receive Date: 20141030
  Receipt Date: 20141030
  Transmission Date: 20150529
  Serious: Yes (Other)
  Sender: FDA-Public Use
  Company Number: PHHY2014JP140847

PATIENT
  Age: 21 Year
  Sex: Female

DRUGS (4)
  1. VANCOMYCIN [Suspect]
     Active Substance: VANCOMYCIN
     Dosage: 1 G, TID
     Route: 042
  2. CICLOSPORIN [Suspect]
     Active Substance: CYCLOSPORINE
     Indication: HISTIOCYTOSIS HAEMATOPHAGIC
     Route: 048
  3. VANCOMYCIN [Suspect]
     Active Substance: VANCOMYCIN
     Indication: STAPHYLOCOCCAL INFECTION
     Dosage: 1 G, BID
     Route: 042
  4. PREDNISOLONE. [Suspect]
     Active Substance: PREDNISOLONE
     Indication: HISTIOCYTOSIS HAEMATOPHAGIC
     Dosage: 50 MG, QD
     Route: 065

REACTIONS (13)
  - Procalcitonin increased [Recovering/Resolving]
  - Osteomyelitis [Recovering/Resolving]
  - Chest X-ray abnormal [Recovering/Resolving]
  - Synovitis [Recovering/Resolving]
  - Arthralgia [Recovering/Resolving]
  - Staphylococcal infection [Recovering/Resolving]
  - Device related infection [Recovering/Resolving]
  - Pulmonary embolism [Recovering/Resolving]
  - Drug ineffective [Unknown]
  - Sacroiliitis [Recovering/Resolving]
  - Pyrexia [Recovering/Resolving]
  - C-reactive protein increased [Recovering/Resolving]
  - Haemoptysis [Recovering/Resolving]
